FAERS Safety Report 7611977-5 (Version None)
Quarter: 2011Q3

REPORT INFORMATION
  Report Type: 
  Country: None (occurrence: None)
  Receive Date: 20110715
  Receipt Date: 20110706
  Transmission Date: 20111222
  Serious: Yes (Other)
  Sender: FDA-Public Use
  Company Number: NO-JNJFOC-20110704296

PATIENT
  Sex: Female

DRUGS (1)
  1. REMICADE [Suspect]
     Indication: UVEITIS
     Dosage: ONE INFUSION TOTAL
     Route: 042

REACTIONS (4)
  - VISUAL ACUITY REDUCED [None]
  - RABIES [None]
  - ANIMAL SCRATCH [None]
  - OFF LABEL USE [None]
